FAERS Safety Report 11743347 (Version 2)
Quarter: 2015Q4

REPORT INFORMATION
  Report Type: Spontaneous
  Country: IE (occurrence: IE)
  Receive Date: 20151116
  Receipt Date: 20151117
  Transmission Date: 20160304
  Serious: Yes (Hospitalization)
  Sender: FDA-Public Use
  Company Number: IE-JNJFOC-20151107345

PATIENT
  Age: 48 Year
  Sex: Male

DRUGS (3)
  1. REGAINE FOAM 5% [Suspect]
     Active Substance: MINOXIDIL
     Indication: ALOPECIA
     Route: 065
     Dates: start: 201510
  2. THYROXINE [Concomitant]
     Active Substance: LEVOTHYROXINE
     Indication: THYROID DISORDER
     Dosage: FEW YEARS AGO
     Route: 065
  3. REGAINE FOAM 5% [Suspect]
     Active Substance: MINOXIDIL
     Route: 065

REACTIONS (3)
  - Haematochezia [None]
  - Mucous stools [None]
  - Intestinal haemorrhage [Unknown]

NARRATIVE: CASE EVENT DATE: 201510
